FAERS Safety Report 5441501-7 (Version None)
Quarter: 2007Q3

REPORT INFORMATION
  Report Type: 
  Country: None (occurrence: None)
  Receive Date: 20070829
  Receipt Date: 20070824
  Transmission Date: 20080115
  Serious: Yes (Other)
  Sender: FDA-Public Use
  Company Number: S07-USA-03602-01

PATIENT
  Age: 41 Year
  Sex: Male
  Weight: 92.9874 kg

DRUGS (2)
  1. LEXAPRO [Suspect]
     Indication: DEPRESSION
     Dosage: 10 MG QD PO
     Route: 048
     Dates: start: 20060801, end: 20070803
  2. LEXAPRO [Suspect]
     Indication: DEPRESSION
     Dosage: 5 MG QD PO
     Route: 048
     Dates: start: 20070804

REACTIONS (3)
  - EJACULATION DELAYED [None]
  - HYPOTHYROIDISM [None]
  - WEIGHT INCREASED [None]
